FAERS Safety Report 21880366 (Version 2)
Quarter: 2023Q1

REPORT INFORMATION
  Report Type: Spontaneous
  Country: US (occurrence: US)
  Receive Date: 20230118
  Receipt Date: 20230208
  Transmission Date: 20230418
  Serious: No
  Sender: FDA-Public Use
  Company Number: US-SUNOVION-2023SUN000082AA

PATIENT
  Sex: Female

DRUGS (1)
  1. LEVALBUTEROL TARTRATE [Suspect]
     Active Substance: LEVALBUTEROL TARTRATE
     Indication: Emphysema
     Dosage: 2 PUFFS EVERY 6HRS
     Route: 055

REACTIONS (6)
  - Frustration tolerance decreased [Unknown]
  - Hypopnoea [Recovering/Resolving]
  - Device malfunction [Unknown]
  - Device issue [Unknown]
  - Product dose omission issue [Unknown]
  - Off label use [Unknown]
